FAERS Safety Report 6453816-4 (Version None)
Quarter: 2009Q4

REPORT INFORMATION
  Report Type: 
  Country: None (occurrence: None)
  Receive Date: 20091124
  Receipt Date: 20091113
  Transmission Date: 20100525
  Serious: Yes (Life-Threatening, Hospitalization)
  Sender: FDA-Public Use
  Company Number: GB-NOVOPROD-292417

PATIENT
  Age: 67 Year
  Sex: Male
  Weight: 97 kg

DRUGS (4)
  1. MIXTARD HUMAN 70/30 [Suspect]
     Indication: TYPE 2 DIABETES MELLITUS
     Dosage: 56 IU, QD
     Route: 058
     Dates: start: 20090828, end: 20091002
  2. INSULATARD [Concomitant]
     Indication: DRUG USE FOR UNKNOWN INDICATION
     Route: 058
  3. ATORVASTATIN [Concomitant]
     Dosage: 10 MG, QD
     Route: 048
  4. METFORMIN HCL [Concomitant]
     Dosage: 1 G, BID
     Route: 048

REACTIONS (5)
  - DYSPNOEA [None]
  - ERYTHEMA [None]
  - PYREXIA [None]
  - SYNCOPE [None]
  - TACHYCARDIA [None]
